FAERS Safety Report 22726877 (Version 2)
Quarter: 2024Q1

REPORT INFORMATION
  Report Type: Spontaneous
  Country: US (occurrence: US)
  Receive Date: 20230720
  Receipt Date: 20240323
  Transmission Date: 20240410
  Serious: Yes (Life-Threatening, Hospitalization, Other)
  Sender: FDA-Public Use
  Company Number: US-MLMSERVICE-20230703-4389939-1

PATIENT
  Age: 58 Year
  Sex: Female

DRUGS (2)
  1. METFORMIN [Suspect]
     Active Substance: METFORMIN HYDROCHLORIDE
     Indication: Diabetes mellitus
     Dosage: 1000 MILLIGRAM, TWO TIMES A DAY
     Route: 065
  2. ENALAPRIL [Concomitant]
     Active Substance: ENALAPRIL
     Indication: Product used for unknown indication
     Dosage: 40 MILLIGRAM, ONCE A DAY
     Route: 065

REACTIONS (5)
  - Shock [Recovering/Resolving]
  - Lactic acidosis [Recovered/Resolved]
  - Metabolic encephalopathy [Recovered/Resolved]
  - Prescription drug used without a prescription [Unknown]
  - Toxicity to various agents [Recovered/Resolved]
